FAERS Safety Report 9298064 (Version 1)
Quarter: 2013Q2

REPORT INFORMATION
  Report Type: Spontaneous
  Country: FR (occurrence: FR)
  Receive Date: 20130520
  Receipt Date: 20130520
  Transmission Date: 20140414
  Serious: Yes (Other)
  Sender: FDA-Public Use
  Company Number: FR-NOVOPROD-377983

PATIENT
  Age: 71 Year
  Sex: Female

DRUGS (6)
  1. VICTOZA [Suspect]
     Indication: TYPE 2 DIABETES MELLITUS
     Dosage: ONE PHARMACEUTICAL DOSE DAILY
     Route: 058
     Dates: start: 20110627
  2. NOVONORM [Concomitant]
     Dosage: 1 MG, QD
  3. LEVEMIR [Concomitant]
     Indication: TYPE 2 DIABETES MELLITUS
     Dosage: 8 IU, IN BED TIME
     Route: 065
  4. HYZAAR [Concomitant]
     Dosage: 62.5 MG, IN MORNING
     Route: 048
  5. METFORMINE [Concomitant]
     Dosage: IN MORNING AND IN EVENING
     Route: 048
  6. SIMVASTATINE [Concomitant]
     Dosage: 10 MG (TWICE IN EVENING)
     Route: 048

REACTIONS (1)
  - Adenocarcinoma of colon [Not Recovered/Not Resolved]
